FAERS Safety Report 5752387-5 (Version None)
Quarter: 2008Q2

REPORT INFORMATION
  Report Type: 
  Country: None (occurrence: None)
  Receive Date: 20080529
  Receipt Date: 20080522
  Transmission Date: 20081010
  Serious: Yes (Death)
  Sender: FDA-Public Use
  Company Number: A0729284A

PATIENT
  Age: 57 Year
  Sex: Male

DRUGS (1)
  1. VENTOLIN [Suspect]
     Indication: DRUG USE FOR UNKNOWN INDICATION
     Route: 055

REACTIONS (3)
  - DEATH [None]
  - ENDOTRACHEAL INTUBATION COMPLICATION [None]
  - PHARMACEUTICAL PRODUCT COMPLAINT [None]
